FAERS Safety Report 5669891-0 (Version None)
Quarter: 2008Q1

REPORT INFORMATION
  Report Type: 
  Country: None (occurrence: None)
  Receive Date: 20080314
  Receipt Date: 20080314
  Transmission Date: 20080703
  Serious: No
  Sender: FDA-Public Use
  Company Number: None

PATIENT
  Sex: Female
  Weight: 74.3899 kg

DRUGS (1)
  1. DYAZIDE [Suspect]
     Indication: HYPERTENSION
     Dosage: 37.5/25 MG DAILY
     Dates: start: 20031014

REACTIONS (4)
  - CYSTITIS [None]
  - NAUSEA [None]
  - THERAPEUTIC RESPONSE UNEXPECTED WITH DRUG SUBSTITUTION [None]
  - VOMITING [None]
